FAERS Safety Report 4850937-4 (Version None)
Quarter: 2005Q4

REPORT INFORMATION
  Report Type: 
  Country: None (occurrence: None)
  Receive Date: 20051208
  Receipt Date: 20051208
  Transmission Date: 20060501
  Serious: Yes (Hospitalization)
  Sender: FDA-Public Use
  Company Number: None

PATIENT
  Age: 68 Year
  Sex: Female

DRUGS (1)
  1. MOXIFLOXACIN 40 MG IV QD [Suspect]
     Dosage: 40 MG IV QD
     Route: 042

REACTIONS (4)
  - DOCUMENTED HYPERSENSITIVITY TO ADMINISTERED DRUG [None]
  - DRUG INTERACTION [None]
  - DRY MOUTH [None]
  - TONGUE DISORDER [None]
